FAERS Safety Report 5672451-9 (Version None)
Quarter: 2008Q1

REPORT INFORMATION
  Report Type: 
  Country: None (occurrence: None)
  Receive Date: 20080318
  Receipt Date: 20080318
  Transmission Date: 20080703
  Serious: Yes (Life-Threatening)
  Sender: FDA-Public Use
  Company Number: None

PATIENT
  Age: 69 Year
  Sex: Male
  Weight: 117.9352 kg

DRUGS (1)
  1. ISOSORB MONO ER   30 MG  ETHEX [Suspect]
     Indication: BLOOD PRESSURE DECREASED
     Dosage: 30MG  1 A DAY  PO
     Route: 048
     Dates: start: 20080314, end: 20080315

REACTIONS (3)
  - BLOOD PRESSURE INCREASED [None]
  - HEART RATE INCREASED [None]
  - PHARMACEUTICAL PRODUCT COMPLAINT [None]
